FAERS Safety Report 6408642-9 (Version None)
Quarter: 2009Q4

REPORT INFORMATION
  Report Type: 
  Country: None (occurrence: None)
  Receive Date: 20091021
  Receipt Date: 20091009
  Transmission Date: 20100525
  Serious: Yes (Other)
  Sender: FDA-Public Use
  Company Number: US-WYE-H11551309

PATIENT
  Sex: Female
  Weight: 68.1 kg

DRUGS (5)
  1. EFFEXOR XR [Suspect]
     Indication: DEPRESSION
     Route: 048
     Dates: start: 20090918, end: 20091008
  2. EFFEXOR XR [Suspect]
     Indication: PANIC DISORDER
     Dosage: ^BEING WEANED OFF^
     Route: 048
     Dates: start: 20091009
  3. EFFEXOR XR [Suspect]
     Indication: ANXIETY
  4. SERTRALINE HCL [Concomitant]
     Indication: DEPRESSION
     Route: 048
  5. SERTRALINE HCL [Concomitant]

REACTIONS (12)
  - ACTIVITIES OF DAILY LIVING IMPAIRED [None]
  - ANXIETY [None]
  - CRYING [None]
  - DIZZINESS [None]
  - ERUCTATION [None]
  - FATIGUE [None]
  - HEADACHE [None]
  - HYPERHIDROSIS [None]
  - MUSCLE TWITCHING [None]
  - NAUSEA [None]
  - PALPITATIONS [None]
  - VERTIGO [None]
